FAERS Safety Report 9342183 (Version 1)
Quarter: 2013Q2

REPORT INFORMATION
  Report Type: Spontaneous
  Country: GB (occurrence: GB)
  Receive Date: 20130611
  Receipt Date: 20130611
  Transmission Date: 20140414
  Serious: Yes (Hospitalization)
  Sender: FDA-Public Use
  Company Number: GB-PFIZER INC-2013087011

PATIENT
  Age: 61 Year
  Sex: Male

DRUGS (2)
  1. ZYVOX [Suspect]
     Indication: ABSCESS
     Dosage: 600 MG, UNK
     Dates: start: 201302
  2. WARFARIN [Suspect]
     Dosage: UNK
     Dates: start: 2007

REACTIONS (1)
  - International normalised ratio increased [Unknown]
